FAERS Safety Report 15455044 (Version 1)
Quarter: 2018Q4

REPORT INFORMATION
  Report Type: Spontaneous
  Country: CA (occurrence: CA)
  Receive Date: 20181002
  Receipt Date: 20181002
  Transmission Date: 20190204
  Serious: Yes (Other)
  Sender: FDA-Public Use
  Company Number: CA-PFIZER INC-2018384396

PATIENT
  Age: 34 Year
  Sex: Female

DRUGS (14)
  1. SOLU-MEDROL [Suspect]
     Active Substance: METHYLPREDNISOLONE SODIUM SUCCINATE
     Indication: CONDITION AGGRAVATED
     Dosage: UNK
     Route: 042
     Dates: start: 201809, end: 201809
  2. CALCIUM [Concomitant]
     Active Substance: CALCIUM
     Dosage: 1 DF, DAILY
     Route: 048
  3. IMODIUM [Concomitant]
     Active Substance: LOPERAMIDE HYDROCHLORIDE
     Dosage: UNK
  4. POTASSIUM [Concomitant]
     Active Substance: POTASSIUM
     Dosage: 1 DF, DAILY
     Route: 048
  5. CAPTOPRIL. [Concomitant]
     Active Substance: CAPTOPRIL
     Dosage: UNK
  6. THIAMINE. [Concomitant]
     Active Substance: THIAMINE
     Dosage: 100 MG, DAILY
     Route: 048
  7. ZOFRAN [ONDANSETRON HYDROCHLORIDE] [Concomitant]
     Dosage: UNK
  8. ONDANSETRON [Concomitant]
     Active Substance: ONDANSETRON
     Dosage: 8 MG, 3X/DAY
     Route: 048
  9. MESALAZINE [Concomitant]
     Active Substance: MESALAMINE
     Indication: PROCTITIS
     Dosage: 1G FOR 100 ML FOR ENEMA AT NIGHT TIME
  10. MULTIVITAMINS W/MINERALS [Concomitant]
     Active Substance: MINERALS\VITAMINS
     Dosage: UNK
  11. FLAGYL [Concomitant]
     Active Substance: METRONIDAZOLE\METRONIDAZOLE HYDROCHLORIDE
     Dosage: UNK
  12. PREDNISONE. [Concomitant]
     Active Substance: PREDNISONE
     Dosage: 40 MG, (TAPERING 5 MG PER WEEK STARTING NEXT WEEK AS PER PATIENT)
     Route: 048
     Dates: start: 20180915
  13. 6-MP [Concomitant]
     Active Substance: MERCAPTOPURINE
     Dosage: UNK
  14. MESALAMINE. [Concomitant]
     Active Substance: MESALAMINE
     Dosage: 4.8 MG, DAILY
     Route: 048

REACTIONS (2)
  - Drug ineffective [Unknown]
  - Rectal haemorrhage [Unknown]
